FAERS Safety Report 25491484 (Version 1)
Quarter: 2025Q2

REPORT INFORMATION
  Report Type: Report from Study
  Country: US (occurrence: US)
  Receive Date: 20250629
  Receipt Date: 20250629
  Transmission Date: 20250717
  Serious: Yes (Other)
  Sender: ABBVIE
  Company Number: US-ABBVIE-6346179

PATIENT
  Age: 58 Year
  Sex: Male

DRUGS (1)
  1. VENCLEXTA [Suspect]
     Active Substance: VENETOCLAX
     Indication: Chronic lymphocytic leukaemia
     Route: 048
     Dates: start: 20250412

REACTIONS (4)
  - Myelosuppression [Unknown]
  - Increased tendency to bruise [Unknown]
  - Bronchiectasis [Unknown]
  - Infection [Unknown]

NARRATIVE: CASE EVENT DATE: 20250101
